FAERS Safety Report 24195498 (Version 1)
Quarter: 2024Q3

REPORT INFORMATION
  Report Type: Spontaneous
  Country: US (occurrence: None)
  Receive Date: 20240809
  Receipt Date: 20240809
  Transmission Date: 20241016
  Serious: Yes (Other)
  Sender: Public
  Company Number: None

PATIENT
  Age: 44 Year
  Sex: Female

DRUGS (13)
  1. KESIMPTA [Suspect]
     Active Substance: OFATUMUMAB
     Indication: Multiple sclerosis
     Dates: start: 20230710
  2. PANTOPRAZOLE [Suspect]
     Active Substance: PANTOPRAZOLE
  3. WEGOVY [Suspect]
     Active Substance: SEMAGLUTIDE
  4. AMLODIPINE [Concomitant]
  5. BACLOFEN [Concomitant]
  6. CARISOPRODOL [Concomitant]
  7. CLONIDINE [Concomitant]
  8. d-amphetatermine salt [Concomitant]
  9. GABAPENTIN [Concomitant]
  10. HYDROCHLOROTHIAZIDE [Concomitant]
     Active Substance: HYDROCHLOROTHIAZIDE
  11. IBUPROFEN [Concomitant]
  12. LISINOPRIL [Concomitant]
  13. VITAMIN D2 [Concomitant]
     Active Substance: ERGOCALCIFEROL

REACTIONS (1)
  - Urinary retention [None]

NARRATIVE: CASE EVENT DATE: 20230715
